FAERS Safety Report 6415026-6 (Version None)
Quarter: 2009Q4

REPORT INFORMATION
  Report Type: 
  Country: None (occurrence: None)
  Receive Date: 20091026
  Receipt Date: 20090812
  Transmission Date: 20100525
  Serious: No
  Sender: FDA-Public Use
  Company Number: US-ABBOTT-09P-163-0591302-00

PATIENT
  Sex: Female
  Weight: 81.72 kg

DRUGS (2)
  1. LUPRON DEPOT [Suspect]
     Indication: ENDOMETRIOSIS
     Route: 030
     Dates: start: 20090731
  2. UNKNOWN ACNE MEDICATION [Concomitant]
     Indication: ACNE

REACTIONS (8)
  - CONSTIPATION [None]
  - DECREASED APPETITE [None]
  - DIARRHOEA [None]
  - FATIGUE [None]
  - MOOD SWINGS [None]
  - PAROSMIA [None]
  - VOMITING [None]
  - WEIGHT DECREASED [None]
